FAERS Safety Report 9249442 (Version 2)
Quarter: 2013Q2

REPORT INFORMATION
  Report Type: Spontaneous
  Country: US (occurrence: US)
  Receive Date: 20130423
  Receipt Date: 20130503
  Transmission Date: 20140414
  Serious: Yes (Hospitalization, Congenital Anomaly)
  Sender: FDA-Public Use
  Company Number: US-GLAXOSMITHKLINE-A1020790A

PATIENT
  Age: 0 Year
  Sex: Female
  Weight: 1.3 kg

DRUGS (3)
  1. PAXIL [Suspect]
     Indication: DEPRESSION
     Route: 064
  2. WELLBUTRIN SR [Concomitant]
  3. TYLENOL #3 [Concomitant]

REACTIONS (4)
  - Ventricular tachycardia [Unknown]
  - Hydrops foetalis [Unknown]
  - Atrial septal defect [Unknown]
  - Foetal exposure during pregnancy [Unknown]
